FAERS Safety Report 9200105 (Version 2)
Quarter: 2013Q2

REPORT INFORMATION
  Report Type: Report from Study
  Country: GB (occurrence: GB)
  Receive Date: 20130329
  Receipt Date: 20130419
  Transmission Date: 20140414
  Serious: Yes (Death, Hospitalization)
  Sender: FDA-Public Use
  Company Number: GB-PFIZER INC-2013088258

PATIENT
  Age: 66 Year
  Sex: Female
  Weight: 43.5 kg

DRUGS (7)
  1. AXITINIB [Suspect]
     Indication: COLORECTAL CANCER METASTATIC
     Dosage: 5 MG, 2X/DAY
     Dates: start: 20130211, end: 20130308
  2. CLEXANE [Concomitant]
     Indication: THROMBOSIS PROPHYLAXIS
     Dosage: UNK
     Route: 033
  3. PREDNISOLONE [Concomitant]
     Indication: DECREASED APPETITE
     Dosage: UNK
     Route: 048
     Dates: start: 20130204, end: 20130304
  4. PREDNISOLONE [Concomitant]
     Dosage: 10 MG, UNK
  5. THYROXINE [Concomitant]
     Indication: THYROID THERAPY
     Dosage: UNK
     Route: 048
     Dates: start: 20130225
  6. DIAZEPAM [Concomitant]
     Dosage: UNK
     Route: 048
  7. CODEINE PHOSPHATE [Concomitant]
     Indication: PAIN
     Dosage: UNK
     Route: 048

REACTIONS (4)
  - Disease progression [Fatal]
  - Colorectal cancer metastatic [Fatal]
  - Confusional state [Recovering/Resolving]
  - Diarrhoea [Recovered/Resolved]
